FAERS Safety Report 26087219 (Version 1)
Quarter: 2025Q4

REPORT INFORMATION
  Report Type: Spontaneous
  Country: US (occurrence: None)
  Receive Date: 20251124
  Receipt Date: 20251124
  Transmission Date: 20260117
  Serious: Yes (Hospitalization)
  Sender: FDA-CTU
  Company Number: None

PATIENT
  Age: 75 Year
  Sex: Female

DRUGS (7)
  1. CERDELGA [Suspect]
     Active Substance: ELIGLUSTAT
     Indication: Gaucher^s disease
     Dosage: FREQUENCY : TWICE A DAY;?
  2. ASPIRIN [Suspect]
     Active Substance: ASPIRIN
  3. METOPROLOL [Suspect]
     Active Substance: METOPROLOL
  4. FUROSEMIDE [Suspect]
     Active Substance: FUROSEMIDE
  5. ATORVASTATIN [Suspect]
     Active Substance: ATORVASTATIN
  6. WARFARIN [Suspect]
     Active Substance: WARFARIN
  7. FAMOTIDINE [Suspect]
     Active Substance: FAMOTIDINE

REACTIONS (1)
  - Cerebrovascular accident [None]
